FAERS Safety Report 10632334 (Version 2)
Quarter: 2014Q4

REPORT INFORMATION
  Report Type: Spontaneous
  Country: US (occurrence: US)
  Receive Date: 20141205
  Receipt Date: 20141205
  Transmission Date: 20150529
  Serious: Yes (Life-Threatening, Hospitalization, Disabling, Other)
  Sender: FDA-Public Use
  Company Number: US-BRISTOL-MYERS SQUIBB COMPANY-21188438

PATIENT
  Age: 33 Year
  Sex: Male

DRUGS (1)
  1. ABATACEPT [Suspect]
     Active Substance: ABATACEPT
     Dosage: LAST DOSE ON:JUL13.
     Route: 042
     Dates: start: 20110531, end: 20130713

REACTIONS (1)
  - Malignant palate neoplasm [Recovered/Resolved]

NARRATIVE: CASE EVENT DATE: 20111110
